FAERS Safety Report 5735136-6 (Version None)
Quarter: 2008Q2

REPORT INFORMATION
  Report Type: 
  Country: None (occurrence: None)
  Receive Date: 20080512
  Receipt Date: 20080505
  Transmission Date: 20081010
  Serious: Yes (Other)
  Sender: FDA-Public Use
  Company Number: PHBS2008US04436

PATIENT
  Age: 64 Year
  Sex: Male

DRUGS (2)
  1. BACLOFEN [Suspect]
     Route: 048
  2. LIORESAL [Suspect]
     Indication: MUSCLE SPASTICITY
     Route: 037
     Dates: start: 20030101

REACTIONS (9)
  - ASTHENIA [None]
  - DRUG INEFFECTIVE [None]
  - HALLUCINATION [None]
  - HYPOTONIA [None]
  - MUSCLE SPASMS [None]
  - MUSCULOSKELETAL STIFFNESS [None]
  - PAIN [None]
  - SENSATION OF HEAVINESS [None]
  - SPEECH DISORDER [None]
